FAERS Safety Report 18603890 (Version 1)
Quarter: 2020Q4

REPORT INFORMATION
  Report Type: Report from Study
  Country: CA (occurrence: CA)
  Receive Date: 20201211
  Receipt Date: 20201211
  Transmission Date: 20210114
  Serious: Yes (Hospitalization)
  Sender: FDA-Public Use
  Company Number: CA-BIOGEN-2020BI00956022

PATIENT
  Sex: Female

DRUGS (1)
  1. FAMPYRA [Suspect]
     Active Substance: DALFAMPRIDINE
     Indication: WALKING DISABILITY
     Route: 048
     Dates: start: 20150206

REACTIONS (2)
  - Muscle spasms [Not Recovered/Not Resolved]
  - Weight bearing difficulty [Not Recovered/Not Resolved]

NARRATIVE: CASE EVENT DATE: 2020
